FAERS Safety Report 23865593 (Version 1)
Quarter: 2024Q2

REPORT INFORMATION
  Report Type: Spontaneous
  Country: US (occurrence: US)
  Receive Date: 20240517
  Receipt Date: 20240517
  Transmission Date: 20240715
  Serious: No
  Sender: FDA-Public Use
  Company Number: US-HALEON-2175789

PATIENT
  Age: 74 Year
  Sex: Female

DRUGS (1)
  1. VOLTAREN ARTHRITIS PAIN [Suspect]
     Active Substance: DICLOFENAC SODIUM
     Indication: Myalgia
     Dosage: EXPDATE:20261231
     Dates: start: 20240507, end: 20240514

REACTIONS (2)
  - Off label use [Unknown]
  - Drug ineffective for unapproved indication [Unknown]
